FAERS Safety Report 18534506 (Version 1)
Quarter: 2020Q4

REPORT INFORMATION
  Report Type: Spontaneous
  Country: US (occurrence: US)
  Receive Date: 20201123
  Receipt Date: 20201123
  Transmission Date: 20210114
  Serious: Yes (Other)
  Sender: FDA-Public Use
  Company Number: None

PATIENT
  Age: 65 Year
  Sex: Female
  Weight: 78.75 kg

DRUGS (6)
  1. FENOFIBRATE NANO [Concomitant]
  2. LISINOPRIL/HCTZ 10-12.5 MG TAB LUPI GENERIC FOR ZESTORETIC; PRINZIDE [Suspect]
     Active Substance: HYDROCHLOROTHIAZIDE\LISINOPRIL
     Indication: BLOOD PRESSURE ABNORMAL
     Dosage: ?          QUANTITY:1 TABLET(S);?
     Route: 048
  3. FEXOFENADINE [Concomitant]
     Active Substance: FEXOFENADINE HYDROCHLORIDE
  4. ROSUVASTATIN. [Concomitant]
     Active Substance: ROSUVASTATIN
  5. OMEGA 3 ACID ETHYL ESTER [Concomitant]
  6. N-ACETYL CYSTEINE [Concomitant]
     Active Substance: ACETYLCYSTEINE

REACTIONS (5)
  - Purpura [None]
  - Hypertriglyceridaemia [None]
  - Chronic pigmented purpura [None]
  - Hyperkalaemia [None]
  - Sleep terror [None]

NARRATIVE: CASE EVENT DATE: 20200116
